FAERS Safety Report 25203322 (Version 2)
Quarter: 2025Q3

REPORT INFORMATION
  Report Type: Report from Study
  Country: US (occurrence: US)
  Receive Date: 20250416
  Receipt Date: 20250809
  Transmission Date: 20251020
  Serious: Yes (Other)
  Sender: ALEXION PHARMACEUTICALS
  Company Number: US-ASTRAZENECA-202504USA011222US

PATIENT
  Age: 68 Year
  Sex: Female

DRUGS (1)
  1. STRENSIQ [Suspect]
     Active Substance: ASFOTASE ALFA
     Indication: Phosphorus metabolism disorder
     Dosage: 2 MILLIGRAM/KILOGRAM, TIW
     Route: 065

REACTIONS (10)
  - Posterior capsule opacification [Unknown]
  - Vitreous detachment [Unknown]
  - Eye pain [Unknown]
  - Borderline glaucoma [Unknown]
  - Hepatic steatosis [Unknown]
  - Arteriosclerosis [Unknown]
  - Wrist fracture [Unknown]
  - Fall [Unknown]
  - Denture wearer [Unknown]
  - Fractured coccyx [Unknown]

NARRATIVE: CASE EVENT DATE: 20240516
